FAERS Safety Report 8125193-4 (Version None)
Quarter: 2012Q1

REPORT INFORMATION
  Report Type: 
  Country: None (occurrence: None)
  Receive Date: 20120206
  Receipt Date: 20120124
  Transmission Date: 20120608
  Serious: Yes (Other)
  Sender: FDA-Public Use
  Company Number: DSJ-2011-2275

PATIENT
  Age: 77 Year
  Sex: Female

DRUGS (4)
  1. METFORMIN HCL [Concomitant]
  2. PANTOPRAZOLE (PANTOPRAZOLE) PANTOPRAZOLE) [Concomitant]
  3. MEDICINE FOR OSTEOPOROSIS [Concomitant]
  4. BENICAR HCT [Suspect]
     Indication: HYPERTENSION
     Dosage: 40/12.5 MG (1 IN 1 D), PER ORAL
     Route: 048
     Dates: start: 20110801, end: 20110901

REACTIONS (3)
  - HYPERCHOLESTEROLAEMIA [None]
  - CEREBROVASCULAR ACCIDENT [None]
  - BLOOD PRESSURE INCREASED [None]
